FAERS Safety Report 5992979-1 (Version None)
Quarter: 2008Q4

REPORT INFORMATION
  Report Type: 
  Country: None (occurrence: None)
  Receive Date: 20081210
  Receipt Date: 20081205
  Transmission Date: 20090506
  Serious: Yes (Other)
  Sender: FDA-Public Use
  Company Number: 037857

PATIENT
  Sex: Female

DRUGS (3)
  1. MEDROXYPROGESTERONE [Suspect]
     Dosage: ORAL
     Route: 048
     Dates: start: 19960101, end: 20020101
  2. PREMARIN [Suspect]
     Dosage: ORAL
     Route: 048
     Dates: start: 19960101, end: 20020101
  3. PROVERA [Suspect]
     Dosage: ORAL
     Route: 048
     Dates: start: 19960101, end: 20020101

REACTIONS (2)
  - BREAST CANCER FEMALE [None]
  - METASTASES TO BONE [None]
